FAERS Safety Report 9607883 (Version 1)
Quarter: 2013Q4

REPORT INFORMATION
  Report Type: Spontaneous
  Country: FR (occurrence: FR)
  Receive Date: 20131009
  Receipt Date: 20131009
  Transmission Date: 20140711
  Serious: Yes (Hospitalization)
  Sender: FDA-Public Use
  Company Number: FR-JNJFOC-20131001387

PATIENT
  Age: 60 Year
  Sex: Female

DRUGS (3)
  1. REMICADE [Suspect]
     Indication: RHEUMATOID ARTHRITIS
     Dosage: EIGHTY FIRST INFUSION
     Route: 042
     Dates: start: 20130626
  2. REMICADE [Suspect]
     Indication: RHEUMATOID ARTHRITIS
     Dosage: 1 DOSAGE FORM
     Route: 042
  3. REMICADE [Suspect]
     Indication: RHEUMATOID ARTHRITIS
     Dosage: EIGHTIETH INFUSION??DOSE: 1DF
     Route: 042
     Dates: start: 20130515

REACTIONS (3)
  - Peritonitis [Recovered/Resolved]
  - Diverticular perforation [Unknown]
  - Diverticulitis [Unknown]
